FAERS Safety Report 9018687 (Version 2)
Quarter: 2013Q1

REPORT INFORMATION
  Report Type: Spontaneous
  Country: GB (occurrence: GB)
  Receive Date: 20130118
  Receipt Date: 20130129
  Transmission Date: 20140127
  Serious: Yes (Other)
  Sender: FDA-Public Use
  Company Number: GB-BAYER-2013-004546

PATIENT
  Sex: 0

DRUGS (1)
  1. NEXAVAR [Suspect]
     Dosage: 400 DAILY
     Dates: start: 201208

REACTIONS (2)
  - Periarthritis [None]
  - Drug intolerance [None]
